FAERS Safety Report 12189149 (Version 1)
Quarter: 2016Q1

REPORT INFORMATION
  Report Type: Spontaneous
  Country: US (occurrence: US)
  Receive Date: 20160317
  Receipt Date: 20160317
  Transmission Date: 20160526
  Serious: Yes (Hospitalization)
  Sender: FDA-Public Use
  Company Number: US-ASTRAZENECA-2016SE28144

PATIENT
  Age: 52 Year
  Sex: Female

DRUGS (10)
  1. ASPIRIN. [Suspect]
     Active Substance: ASPIRIN
     Route: 065
  2. ONGLYZA [Suspect]
     Active Substance: SAXAGLIPTIN HYDROCHLORIDE
     Route: 048
  3. ELIQUIS [Suspect]
     Active Substance: APIXABAN
     Route: 065
  4. BROMOCRIPTINE [Concomitant]
     Active Substance: BROMOCRIPTINE
  5. SIMVASTATIN. [Concomitant]
     Active Substance: SIMVASTATIN
  6. ENALAPRIL MALEATE. [Concomitant]
     Active Substance: ENALAPRIL MALEATE
  7. DEPAKOTE [Concomitant]
     Active Substance: DIVALPROEX SODIUM
     Dosage: 500 MG 4 TIMES DAILY, 2 IN THE MORNING AND 2 AT NIGHT
  8. THIOTHIXENE. [Suspect]
     Active Substance: THIOTHIXENE
     Route: 065
  9. METOPROLOL TARTRATE. [Suspect]
     Active Substance: METOPROLOL TARTRATE
     Route: 065
  10. ACTOPLUS MET [Concomitant]
     Active Substance: METFORMIN HYDROCHLORIDE\PIOGLITAZONE HYDROCHLORIDE

REACTIONS (5)
  - Atrial fibrillation [Unknown]
  - Weight increased [Unknown]
  - Oedema peripheral [Unknown]
  - Inflammation [Unknown]
  - Pneumonia [Unknown]
